FAERS Safety Report 6418326-9 (Version None)
Quarter: 2009Q4

REPORT INFORMATION
  Report Type: 
  Country: None (occurrence: None)
  Receive Date: 20091023
  Receipt Date: 20090827
  Transmission Date: 20100525
  Serious: Yes (Other)
  Sender: FDA-Public Use
  Company Number: 2009UF0195

PATIENT
  Age: 12 Year
  Sex: Female

DRUGS (1)
  1. ULESFIA [Suspect]
     Indication: LICE INFESTATION
     Dosage: 1 BOTTLE, AS NEEDED
     Dates: start: 20090826, end: 20090826

REACTIONS (1)
  - DRUG INEFFECTIVE [None]
